FAERS Safety Report 17556823 (Version 4)
Quarter: 2020Q4

REPORT INFORMATION
  Report Type: Report from Study
  Country: GB (occurrence: GB)
  Receive Date: 20200318
  Receipt Date: 20201213
  Transmission Date: 20210113
  Serious: Yes (Other)
  Sender: FDA-Public Use
  Company Number: GB-JNJFOC-20191143584

PATIENT
  Age: 51 Year
  Sex: Male

DRUGS (2)
  1. STELARA [Suspect]
     Active Substance: USTEKINUMAB
     Indication: CROHN^S DISEASE
     Route: 058
     Dates: start: 2019
  2. STELARA [Suspect]
     Active Substance: USTEKINUMAB

REACTIONS (3)
  - Inappropriate schedule of product administration [Unknown]
  - Arthropathy [Unknown]
  - Pneumonia [Unknown]

NARRATIVE: CASE EVENT DATE: 202003
